FAERS Safety Report 9678735 (Version 2)
Quarter: 2013Q4

REPORT INFORMATION
  Report Type: Spontaneous
  Country: US (occurrence: US)
  Receive Date: 20131108
  Receipt Date: 20131108
  Transmission Date: 20140711
  Serious: Yes (Hospitalization)
  Sender: FDA-Public Use
  Company Number: US-B.I. PHARMACEUTICALS,INC./RIDGEFIELD-2013-BI-13953BP

PATIENT
  Age: 69 Year
  Sex: Male
  Weight: 106.59 kg

DRUGS (8)
  1. PRADAXA [Suspect]
     Indication: ANTICOAGULANT THERAPY
     Dates: start: 20110722, end: 20111110
  2. CELEBREX [Suspect]
     Indication: OSTEOARTHRITIS
  3. ARIXTRA [Suspect]
  4. AMIODARONE [Concomitant]
     Indication: ATRIAL FIBRILLATION
  5. COREG [Concomitant]
     Indication: ATRIAL FIBRILLATION
  6. CYMBALTA [Concomitant]
     Indication: NEUROPATHY PERIPHERAL
  7. SPIRONOLACTONE [Concomitant]
  8. TERAZOSIN [Concomitant]

REACTIONS (2)
  - Gastrointestinal haemorrhage [Unknown]
  - Anaemia [Unknown]
